FAERS Safety Report 24584829 (Version 1)
Quarter: 2024Q4

REPORT INFORMATION
  Report Type: Spontaneous
  Country: CN (occurrence: CN)
  Receive Date: 20241106
  Receipt Date: 20241106
  Transmission Date: 20250115
  Serious: Yes (Hospitalization)
  Sender: EISAI
  Company Number: CN-Eisai-EC-2024-177906

PATIENT
  Sex: Female

DRUGS (3)
  1. HALAVEN [Suspect]
     Active Substance: ERIBULIN MESYLATE
     Indication: Breast cancer
     Dosage: DOSE UNKNOWN
     Route: 042
  2. HALAVEN [Suspect]
     Active Substance: ERIBULIN MESYLATE
     Route: 042
     Dates: start: 20240223, end: 20240223
  3. HALAVEN [Suspect]
     Active Substance: ERIBULIN MESYLATE
     Route: 042
     Dates: start: 20240306

REACTIONS (1)
  - Neutrophil count decreased [Recovered/Resolved]

NARRATIVE: CASE EVENT DATE: 20240302
